FAERS Safety Report 10041990 (Version 1)
Quarter: 2014Q1

REPORT INFORMATION
  Report Type: Spontaneous
  Country: US (occurrence: US)
  Receive Date: 20140327
  Receipt Date: 20140327
  Transmission Date: 20141002
  Serious: Yes (Other)
  Sender: FDA-Public Use
  Company Number: US-JNJFOC-20140314389

PATIENT
  Sex: Male

DRUGS (4)
  1. NICOTROL [Suspect]
     Route: 062
  2. NICOTROL [Suspect]
     Indication: SMOKING CESSATION THERAPY
     Route: 062
  3. NICOTROL INHALER [Suspect]
     Route: 055
  4. NICOTROL INHALER [Suspect]
     Indication: SMOKING CESSATION THERAPY
     Route: 055

REACTIONS (1)
  - Gallbladder disorder [Unknown]
